FAERS Safety Report 14544339 (Version 1)
Quarter: 2018Q1

REPORT INFORMATION
  Report Type: Spontaneous
  Country: US (occurrence: US)
  Receive Date: 20180215
  Receipt Date: 20180215
  Transmission Date: 20180509
  Serious: Yes (Hospitalization)
  Sender: FDA-Public Use
  Company Number: None

PATIENT
  Age: 4 Year
  Sex: Male

DRUGS (8)
  1. REVATIO [Suspect]
     Active Substance: SILDENAFIL CITRATE
     Indication: PULMONARY ARTERIAL HYPERTENSION
     Dosage: FREQUENCY - EVERY 5 HOURS
     Route: 048
     Dates: start: 20170819
  2. TRACLEER [Concomitant]
     Active Substance: BOSENTAN
  3. HYOSYNE [Concomitant]
     Active Substance: HYOSCYAMINE SULFATE
  4. LEVALBUTEROL. [Concomitant]
     Active Substance: LEVALBUTEROL
  5. PREDNISOLONE. [Concomitant]
     Active Substance: PREDNISOLONE
  6. DIURIL [Concomitant]
     Active Substance: CHLOROTHIAZIDE
  7. AMOXICILLIN. [Concomitant]
     Active Substance: AMOXICILLIN
  8. CHLORIDE [Concomitant]
     Active Substance: CHLORIDE ION

REACTIONS (1)
  - Respiratory syncytial virus infection [None]

NARRATIVE: CASE EVENT DATE: 20180118
